FAERS Safety Report 7260468-2 (Version None)
Quarter: 2011Q1

REPORT INFORMATION
  Report Type: 
  Country: None (occurrence: None)
  Receive Date: 20110130
  Receipt Date: 20101119
  Transmission Date: 20110831
  Serious: No
  Sender: FDA-Public Use
  Company Number: US-ABBOTT-10P-163-0686906-00

PATIENT
  Age: 47 Year
  Sex: Male

DRUGS (3)
  1. VICODIN [Concomitant]
     Indication: PAIN
  2. MOTRIN [Concomitant]
     Indication: PAIN
  3. HUMIRA [Suspect]
     Indication: PSORIATIC ARTHROPATHY
     Dates: start: 20091101

REACTIONS (2)
  - PSORIASIS [None]
  - ARTHRALGIA [None]
